FAERS Safety Report 11580864 (Version 3)
Quarter: 2015Q4

REPORT INFORMATION
  Report Type: Report from Study
  Country: US (occurrence: US)
  Receive Date: 20151001
  Receipt Date: 20151211
  Transmission Date: 20160304
  Serious: Yes (Hospitalization, Other)
  Sender: FDA-Public Use
  Company Number: US-ALEXION-A201503757

PATIENT
  Sex: Female

DRUGS (1)
  1. SOLIRIS [Suspect]
     Active Substance: ECULIZUMAB
     Indication: HAEMOLYTIC URAEMIC SYNDROME
     Dosage: 1200 MG, UNK
     Route: 042

REACTIONS (7)
  - Nausea [Unknown]
  - Sepsis [Unknown]
  - Mouth ulceration [Unknown]
  - Device related infection [Unknown]
  - Colitis [Unknown]
  - Arthralgia [Unknown]
  - Fatigue [Unknown]
